FAERS Safety Report 6934205-2 (Version None)
Quarter: 2010Q3

REPORT INFORMATION
  Report Type: 
  Country: None (occurrence: None)
  Receive Date: 20100820
  Receipt Date: 20100816
  Transmission Date: 20110219
  Serious: Yes (Hospitalization)
  Sender: FDA-Public Use
  Company Number: A0876594A

PATIENT
  Sex: Female
  Weight: 69 kg

DRUGS (8)
  1. NIQUITIN 21MG [Suspect]
     Indication: SMOKING CESSATION THERAPY
     Dosage: 21MG PER DAY
     Route: 062
     Dates: start: 20100730, end: 20100811
  2. NIQUITIN 14MG [Suspect]
     Indication: SMOKING CESSATION THERAPY
     Route: 062
  3. UNKNOWN [Concomitant]
  4. RIVOTRIL [Concomitant]
     Dosage: 2MG TWICE PER DAY
  5. BROMAZEPAN [Concomitant]
     Dosage: 3MG TWICE PER DAY
  6. AMINOPHYLLINE [Concomitant]
     Dosage: 100MG THREE TIMES PER DAY
  7. ATENOLOL [Concomitant]
  8. FUROSEMIDE [Concomitant]
     Dosage: 40MG TWICE PER DAY

REACTIONS (6)
  - BRUXISM [None]
  - CRYING [None]
  - DEPRESSION [None]
  - DYSPNOEA [None]
  - TREATMENT NONCOMPLIANCE [None]
  - VOMITING [None]
